FAERS Safety Report 19021584 (Version 1)
Quarter: 2021Q1

REPORT INFORMATION
  Report Type: Spontaneous
  Country: SE (occurrence: SE)
  Receive Date: 20210317
  Receipt Date: 20210317
  Transmission Date: 20210420
  Serious: Yes (Hospitalization)
  Sender: FDA-Public Use
  Company Number: SE-ANIPHARMA-2021-SE-000004

PATIENT
  Age: 74 Year
  Sex: Female

DRUGS (8)
  1. CANDESARTAN. [Suspect]
     Active Substance: CANDESARTAN
     Indication: BLOOD PRESSURE MEASUREMENT
     Route: 048
  2. SPRYCEL [Suspect]
     Active Substance: DASATINIB
     Dosage: UNKNOWN DOSE AND FREQUENCY
     Route: 065
  3. CITALOPRAM [Suspect]
     Active Substance: CITALOPRAM HYDROBROMIDE
     Dosage: UNKNOWN DOSE AND FREQUENCY
     Route: 065
  4. TROMBYL [Concomitant]
     Active Substance: ASPIRIN
     Dosage: UNKNOWN DOSE AND FREQUENCY
     Route: 065
  5. IMATINIB. [Suspect]
     Active Substance: IMATINIB MESYLATE
     Dosage: 400 MG DAILY
     Route: 065
     Dates: start: 20200915, end: 20201211
  6. PANTOPRAZOL [Suspect]
     Active Substance: PANTOPRAZOLE SODIUM
     Dosage: UNKNOWN DOSE AND FREQUENCY
     Route: 065
  7. METOPROLOL. [Suspect]
     Active Substance: METOPROLOL
     Route: 048
  8. AMLODIPIN [Suspect]
     Active Substance: AMLODIPINE BESYLATE
     Dosage: UNKNOWN DOSE AND FREQUENCY
     Route: 065

REACTIONS (18)
  - Pleural effusion [Unknown]
  - Dyschromatopsia [Recovered/Resolved]
  - Swelling face [Unknown]
  - Nausea [Recovered/Resolved]
  - Dizziness [Recovered/Resolved]
  - Diarrhoea [Unknown]
  - Fatigue [Recovered/Resolved]
  - Muscle spasms [Recovered/Resolved]
  - Hypoacusis [Recovered/Resolved]
  - Swelling of eyelid [Recovered/Resolved]
  - Nervousness [Recovered/Resolved]
  - Taste disorder [Recovered/Resolved]
  - Visual impairment [Recovered/Resolved]
  - Abdominal pain upper [Recovered/Resolved]
  - Weight increased [Recovered/Resolved]
  - Illness [Unknown]
  - Appetite disorder [Unknown]
  - Abdominal discomfort [Unknown]

NARRATIVE: CASE EVENT DATE: 20200915
